FAERS Safety Report 18124689 (Version 3)
Quarter: 2020Q4

REPORT INFORMATION
  Report Type: Report from Study
  Country: US (occurrence: US)
  Receive Date: 20200807
  Receipt Date: 20201218
  Transmission Date: 20210113
  Serious: Yes (Other)
  Sender: FDA-Public Use
  Company Number: US-AMGEN-USASL2020090444

PATIENT
  Age: 71 Year
  Sex: Male

DRUGS (3)
  1. REPATHA [Suspect]
     Active Substance: EVOLOCUMAB
     Indication: HYPERCHOLESTEROLAEMIA
     Dosage: 140 MILLIGRAM, Q2WK
     Route: 065
     Dates: start: 202003
  2. REPATHA [Suspect]
     Active Substance: EVOLOCUMAB
     Indication: BLOOD CHOLESTEROL ABNORMAL
     Dosage: 140 MILLIGRAM, Q2WK
     Route: 065
  3. REPATHA [Suspect]
     Active Substance: EVOLOCUMAB
     Dosage: 140 MILLIGRAM, Q2WK
     Route: 065

REACTIONS (20)
  - Cerebrovascular accident [Unknown]
  - Muscle strain [Unknown]
  - Abnormal behaviour [Unknown]
  - Oropharyngeal pain [Recovering/Resolving]
  - Headache [Unknown]
  - Ocular hyperaemia [Recovering/Resolving]
  - Sneezing [Unknown]
  - Myalgia [Not Recovered/Not Resolved]
  - Nasal congestion [Unknown]
  - Hypertension [Unknown]
  - Arthritis [Unknown]
  - SARS-CoV-2 test positive [Unknown]
  - Chest pain [Not Recovered/Not Resolved]
  - Eyelid margin crusting [Recovering/Resolving]
  - High density lipoprotein decreased [Unknown]
  - Macular degeneration [Recovering/Resolving]
  - Dyspnoea [Unknown]
  - Head discomfort [Unknown]
  - Fatigue [Unknown]
  - Injection site pain [Unknown]

NARRATIVE: CASE EVENT DATE: 2020
